FAERS Safety Report 5514384-4 (Version None)
Quarter: 2007Q4

REPORT INFORMATION
  Report Type: 
  Country: None (occurrence: None)
  Receive Date: 20071113
  Receipt Date: 20070503
  Transmission Date: 20080405
  Serious: No
  Sender: FDA-Public Use
  Company Number: A0649863A

PATIENT
  Age: 59 Year
  Sex: Female

DRUGS (9)
  1. COREG [Suspect]
     Indication: CARDIOMYOPATHY
     Dosage: 3.125MG TWICE PER DAY
     Route: 048
     Dates: start: 20070422, end: 20070425
  2. ZOLOFT [Concomitant]
  3. VITAMINS [Concomitant]
  4. ALTACE [Concomitant]
  5. METHOTREXATE [Concomitant]
  6. CYTOXAN [Concomitant]
     Route: 048
  7. FLUOROURACIL [Concomitant]
  8. DECADRON [Concomitant]
  9. BENADRYL [Concomitant]

REACTIONS (1)
  - RASH [None]
